FAERS Safety Report 24970638 (Version 1)
Quarter: 2025Q1

REPORT INFORMATION
  Report Type: Spontaneous
  Country: US (occurrence: US)
  Receive Date: 20250214
  Receipt Date: 20250214
  Transmission Date: 20250409
  Serious: No
  Sender: Haleon PLC
  Company Number: US-HALEON-2228216

PATIENT

DRUGS (5)
  1. ADVIL [Suspect]
     Active Substance: IBUPROFEN
     Indication: Influenza
  2. ADVIL [Suspect]
     Active Substance: IBUPROFEN
     Indication: Discomfort
  3. ADVIL [Suspect]
     Active Substance: IBUPROFEN
     Indication: Influenza
  4. ADVIL [Suspect]
     Active Substance: IBUPROFEN
     Indication: Headache
  5. ADVIL [Suspect]
     Active Substance: IBUPROFEN
     Indication: Pyrexia

REACTIONS (2)
  - Drug effective for unapproved indication [Unknown]
  - Product use in unapproved indication [Unknown]
